FAERS Safety Report 25751327 (Version 1)
Quarter: 2025Q3

REPORT INFORMATION
  Report Type: Spontaneous
  Country: US (occurrence: None)
  Receive Date: 20250901
  Receipt Date: 20250901
  Transmission Date: 20251021
  Serious: No
  Sender: FDA-CTU
  Company Number: None

PATIENT
  Sex: Female

DRUGS (1)
  1. KESIMPTA [Suspect]
     Active Substance: OFATUMUMAB
     Indication: Multiple sclerosis
     Dosage: OTHER FREQUENCY : EVERY MONTH;?
     Route: 058
     Dates: start: 20250509

REACTIONS (6)
  - Mental disorder [None]
  - Chills [None]
  - Pyrexia [None]
  - Pain [None]
  - Gait disturbance [None]
  - Adverse drug reaction [None]
